FAERS Safety Report 19036153 (Version 1)
Quarter: 2021Q1

REPORT INFORMATION
  Report Type: Spontaneous
  Country: TW (occurrence: TW)
  Receive Date: 20210321
  Receipt Date: 20210321
  Transmission Date: 20210420
  Serious: Yes (Hospitalization)
  Sender: FDA-Public Use
  Company Number: TW-ROCHE-2792360

PATIENT
  Age: 72 Year
  Sex: Female
  Weight: 54 kg

DRUGS (12)
  1. RIVOTRIL [Concomitant]
     Active Substance: CLONAZEPAM
     Route: 048
  2. FOSAMAX PLUS D [Concomitant]
     Active Substance: ALENDRONATE SODIUM\CHOLECALCIFEROL
     Route: 048
  3. CELEBREX [Concomitant]
     Active Substance: CELECOXIB
     Route: 048
  4. SILYMARIN [Concomitant]
     Active Substance: DIETARY SUPPLEMENT\HERBALS\MILK THISTLE
     Route: 048
  5. PIPERACILLINE [Concomitant]
     Active Substance: PIPERACILLIN SODIUM
     Route: 042
     Dates: start: 20210306, end: 20210307
  6. MABTHERA [Suspect]
     Active Substance: RITUXIMAB
     Indication: RHEUMATOID ARTHRITIS
     Dosage: ON 11/DEC/2020, SHE RECEIVED LAST DOSE OF RITUXIMAB.
     Route: 041
     Dates: start: 20201113, end: 20201211
  7. PLAQUENIL [Concomitant]
     Active Substance: HYDROXYCHLOROQUINE SULFATE
     Route: 048
  8. PREDNISOLONE. [Concomitant]
     Active Substance: PREDNISOLONE
     Indication: RHEUMATOID ARTHRITIS
     Route: 048
     Dates: start: 20201225
  9. PROMOSTAN [Concomitant]
     Route: 042
     Dates: start: 20210220
  10. CEFOTAXIME [Concomitant]
     Active Substance: CEFOTAXIME SODIUM
     Route: 042
     Dates: start: 20210303
  11. FOLIC ACID. [Concomitant]
     Active Substance: FOLIC ACID
     Route: 048
  12. METHOTREXATE. [Concomitant]
     Active Substance: METHOTREXATE
     Indication: RHEUMATOID ARTHRITIS
     Route: 048
     Dates: start: 20210129

REACTIONS (1)
  - Peripheral arterial occlusive disease [Not Recovered/Not Resolved]

NARRATIVE: CASE EVENT DATE: 20210215
